FAERS Safety Report 4899415-7 (Version None)
Quarter: 2006Q1

REPORT INFORMATION
  Report Type: 
  Country: None (occurrence: None)
  Receive Date: 20060202
  Receipt Date: 19950310
  Transmission Date: 20060701
  Serious: Yes (Hospitalization)
  Sender: FDA-Public Use
  Company Number: FR-ABBOTT-95P-056-0068265-00

PATIENT
  Age: 25 Year
  Sex: Female

DRUGS (6)
  1. VALPROATE CHRONO [Suspect]
     Indication: SUICIDE ATTEMPT
     Route: 048
     Dates: start: 19931006, end: 19931006
  2. VALPROATE CHRONO [Suspect]
     Indication: EPILEPSY
  3. PIMOZIDE [Concomitant]
     Indication: DRUG USE FOR UNKNOWN INDICATION
  4. PHENOBARBITAL TAB [Concomitant]
     Indication: DRUG USE FOR UNKNOWN INDICATION
  5. CAFFEINE [Concomitant]
     Indication: DRUG USE FOR UNKNOWN INDICATION
  6. CLOBAZAM [Concomitant]
     Indication: SUICIDE ATTEMPT

REACTIONS (8)
  - ALANINE AMINOTRANSFERASE INCREASED [None]
  - ASPARTATE AMINOTRANSFERASE INCREASED [None]
  - COMA [None]
  - GAMMA-GLUTAMYLTRANSFERASE INCREASED [None]
  - HYPERAMMONAEMIA [None]
  - INTENTIONAL DRUG MISUSE [None]
  - OVERDOSE [None]
  - SUICIDE ATTEMPT [None]
